FAERS Safety Report 5365483-1 (Version None)
Quarter: 2007Q2

REPORT INFORMATION
  Report Type: 
  Country: None (occurrence: None)
  Receive Date: 20070530
  Receipt Date: 20070127
  Transmission Date: 20071010
  Serious: No
  Sender: FDA-Public Use
  Company Number: 2007PV029147

PATIENT
  Age: 82 Year
  Sex: Male
  Weight: 88.4514 kg

DRUGS (4)
  1. BYETTA [Suspect]
     Indication: DIABETES MELLITUS NON-INSULIN-DEPENDENT
     Dosage: 10 MCG;BID;SC   5 MCG;BID;SC
     Route: 058
     Dates: start: 20061101, end: 20061201
  2. BYETTA [Suspect]
     Indication: DIABETES MELLITUS NON-INSULIN-DEPENDENT
     Dosage: 10 MCG;BID;SC   5 MCG;BID;SC
     Route: 058
     Dates: start: 20061201, end: 20070125
  3. NOVOLIN N [Concomitant]
  4. NOVOLIN R [Concomitant]

REACTIONS (5)
  - DIARRHOEA [None]
  - EAR, NOSE AND THROAT EXAMINATION ABNORMAL [None]
  - FATIGUE [None]
  - PYREXIA [None]
  - WEIGHT DECREASED [None]
